FAERS Safety Report 17955055 (Version 1)
Quarter: 2020Q2

REPORT INFORMATION
  Report Type: Spontaneous
  Country: GB (occurrence: GB)
  Receive Date: 20200629
  Receipt Date: 20200629
  Transmission Date: 20200714
  Serious: No
  Sender: FDA-Public Use
  Company Number: GB-LUPIN PHARMACEUTICALS INC.-2019-04262

PATIENT
  Age: 27 Year
  Sex: Female

DRUGS (2)
  1. SIMVASTATIN. [Suspect]
     Active Substance: SIMVASTATIN
     Indication: CHILD SYNDROME
     Dosage: UNK, IN UNGUENTUM
     Route: 061
  2. CHOLESTEROL [Suspect]
     Active Substance: CHOLESTEROL
     Indication: CHILD SYNDROME
     Dosage: UNK, IN UNGUENTUM
     Route: 061

REACTIONS (1)
  - Skin irritation [Unknown]
